FAERS Safety Report 23161853 (Version 1)
Quarter: 2023Q4

REPORT INFORMATION
  Report Type: Spontaneous
  Country: DE (occurrence: DE)
  Receive Date: 20231108
  Receipt Date: 20231108
  Transmission Date: 20240109
  Serious: Yes (Death, Life-Threatening, Hospitalization, Other)
  Sender: FDA-Public Use
  Company Number: None

PATIENT
  Age: 52 Year
  Sex: Female
  Weight: 75 kg

DRUGS (7)
  1. PREGABALIN [Interacting]
     Active Substance: PREGABALIN
     Indication: Analgesic therapy
     Dosage: 25-25-275MG
     Dates: start: 202306, end: 20230803
  2. NOVALGIN (METAMIZOLE SODIUM) [Interacting]
     Active Substance: METAMIZOLE SODIUM
     Indication: Analgesic therapy
     Dosage: 4X40 TR/D
     Dates: start: 202306, end: 20230803
  3. ACYCLOVIR [Concomitant]
     Active Substance: ACYCLOVIR
     Indication: Ophthalmic herpes zoster
     Dosage: 3 X T?GLICH ?BER 10 TAGE (3 X DAILY OVER 10 DAYS)
     Route: 042
     Dates: start: 20230611
  4. PANTOPRAZOLE [Concomitant]
     Active Substance: PANTOPRAZOLE
     Indication: Product used for unknown indication
     Dosage: 1-0-0
  5. IBUPROFEN [Concomitant]
     Active Substance: IBUPROFEN
     Indication: Product used for unknown indication
     Dosage: 1-1-1
  6. Decortin H 50 mg [Concomitant]
     Indication: Product used for unknown indication
     Dates: start: 20230611
  7. Penicillin G 10 Mega [Concomitant]
     Indication: Erysipelas
     Dosage: 3 X T?GLICH I.V (3 X DAILY I.V)
     Route: 042
     Dates: start: 20230611

REACTIONS (4)
  - Septic shock [Fatal]
  - Agranulocytosis [Not Recovered/Not Resolved]
  - Toxicity to various agents [Not Recovered/Not Resolved]
  - Drug interaction [Unknown]

NARRATIVE: CASE EVENT DATE: 20230803
